FAERS Safety Report 13949797 (Version 1)
Quarter: 2017Q3

REPORT INFORMATION
  Report Type: Spontaneous
  Country: US (occurrence: US)
  Receive Date: 20170908
  Receipt Date: 20170908
  Transmission Date: 20171128
  Serious: No
  Sender: FDA-Public Use
  Company Number: US-ROCHE-1146541

PATIENT
  Sex: Male
  Weight: 163.44 kg

DRUGS (1)
  1. RITUXAN [Suspect]
     Active Substance: RITUXIMAB
     Indication: RHEUMATOID ARTHRITIS
     Dosage: 1000
     Route: 042
     Dates: start: 200911

REACTIONS (4)
  - Chest discomfort [Recovered/Resolved]
  - Flushing [Recovered/Resolved]
  - Ear pruritus [Recovered/Resolved]
  - Wheezing [Recovered/Resolved]
